FAERS Safety Report 19197557 (Version 6)
Quarter: 2023Q1

REPORT INFORMATION
  Report Type: Report from Study
  Country: IL (occurrence: IL)
  Receive Date: 20210429
  Receipt Date: 20230314
  Transmission Date: 20230417
  Serious: Yes (Hospitalization, Other)
  Sender: FDA-Public Use
  Company Number: IL-NOVARTISPH-NVSC2019IL082583

PATIENT
  Age: 71 Year
  Sex: Female

DRUGS (4)
  1. SANDOSTATIN LAR DEPOT [Suspect]
     Active Substance: OCTREOTIDE ACETATE
     Indication: Neuroendocrine tumour
     Dosage: 30 MG, Q4W (INTRAGLUTEAL)
     Route: 030
     Dates: start: 20190630
  2. SANDOSTATIN LAR DEPOT [Suspect]
     Active Substance: OCTREOTIDE ACETATE
     Dosage: 30 MG, Q3W (INTRAGLUTEAL)
     Route: 030
  3. SANDOSTATIN LAR DEPOT [Suspect]
     Active Substance: OCTREOTIDE ACETATE
     Dosage: 30 MG, Q2W (INTRAGLUTEAL)
     Route: 030
  4. DEXAMICIN [Concomitant]
     Indication: Product used for unknown indication
     Dosage: 4 MG, QID
     Route: 065

REACTIONS (5)
  - Liver disorder [Not Recovered/Not Resolved]
  - Metastases to liver [Not Recovered/Not Resolved]
  - Metastases to bone [Not Recovered/Not Resolved]
  - Hepatic lesion [Not Recovered/Not Resolved]
  - Inappropriate schedule of product administration [Unknown]
